FAERS Safety Report 5693447-7 (Version None)
Quarter: 2008Q2

REPORT INFORMATION
  Report Type: 
  Country: None (occurrence: None)
  Receive Date: 20080401
  Receipt Date: 20080401
  Transmission Date: 20081010
  Serious: Yes (Life-Threatening)
  Sender: FDA-Public Use
  Company Number: None

PATIENT
  Sex: Male
  Weight: 112.9457 kg

DRUGS (2)
  1. LAMICTAL [Suspect]
     Indication: CONVULSION
     Dosage: 100MG BID PO
     Route: 048
     Dates: start: 20071116, end: 20080114
  2. KEPPRA [Suspect]
     Indication: CONVULSION
     Dosage: 1.5 GM BID PO
     Route: 048
     Dates: start: 20070301, end: 20080115

REACTIONS (2)
  - ANAEMIA [None]
  - LEUKOPENIA [None]
